FAERS Safety Report 8405762-4 (Version None)
Quarter: 2012Q2

REPORT INFORMATION
  Report Type: 
  Country: None (occurrence: None)
  Receive Date: 20120529
  Receipt Date: 20070626
  Transmission Date: 20120825
  Serious: Yes (Other)
  Sender: FDA-Public Use
  Company Number: 02100-JPN-07-0247

PATIENT
  Age: 81 Year
  Sex: Female

DRUGS (5)
  1. AMLODIPINE BESYLATE [Concomitant]
  2. PLETAL [Suspect]
     Indication: CEREBRAL INFARCTION
     Dosage: 50 MB, BID, ORAL 100 MG, BID, ORAL
     Route: 048
     Dates: start: 20070401, end: 20070416
  3. PLETAL [Suspect]
     Indication: CEREBRAL INFARCTION
     Dosage: 50 MB, BID, ORAL 100 MG, BID, ORAL
     Route: 048
     Dates: start: 20070301, end: 20070401
  4. BIZOCROSS (ACICLOVIR) [Concomitant]
  5. NEUROTROPIN (ORGAN LYSATE, STANDARDIZED) [Concomitant]

REACTIONS (10)
  - MYALGIA [None]
  - RED BLOOD CELL COUNT DECREASED [None]
  - CEREBRAL INFARCTION [None]
  - ECZEMA [None]
  - HERPES ZOSTER [None]
  - BLOOD CREATINE PHOSPHOKINASE INCREASED [None]
  - HERPES SIMPLEX [None]
  - OVERDOSE [None]
  - ANAEMIA [None]
  - ACCIDENTAL OVERDOSE [None]
